FAERS Safety Report 10308649 (Version 1)
Quarter: 2014Q3

REPORT INFORMATION
  Report Type: Spontaneous
  Country: CH (occurrence: CH)
  Receive Date: 20140716
  Receipt Date: 20140716
  Transmission Date: 20150326
  Serious: Yes (Hospitalization)
  Sender: FDA-Public Use
  Company Number: PHHY2014CH085989

PATIENT
  Sex: Female
  Weight: 82 kg

DRUGS (4)
  1. ALLOPUR [Suspect]
     Active Substance: ALLOPURINOL
     Indication: HYPERURICAEMIA
     Dosage: 400 MG, DAILY
     Route: 048
     Dates: start: 20140416, end: 20140519
  2. AMLODIPINE [Concomitant]
     Active Substance: AMLODIPINE BESYLATE
     Indication: HYPERTENSION
     Dosage: 10 MG, UNK
     Route: 048
  3. BELOC ZOK [Concomitant]
     Active Substance: METOPROLOL SUCCINATE
     Indication: HYPERTENSION
     Dosage: 150 MG, UNK
     Route: 048
  4. NEPHROTRANS [Concomitant]
     Indication: RENAL FAILURE
     Dosage: 1500 MG, UNK
     Route: 048

REACTIONS (9)
  - Odynophagia [Recovering/Resolving]
  - Oral disorder [Recovering/Resolving]
  - Drug reaction with eosinophilia and systemic symptoms [Recovering/Resolving]
  - Myalgia [Recovering/Resolving]
  - Arthralgia [Recovering/Resolving]
  - Rash maculo-papular [Recovering/Resolving]
  - Liver function test abnormal [Recovering/Resolving]
  - Eosinophilia [Recovering/Resolving]
  - Diarrhoea [Recovering/Resolving]

NARRATIVE: CASE EVENT DATE: 20140606
